FAERS Safety Report 21548674 (Version 1)
Quarter: 2022Q4

REPORT INFORMATION
  Report Type: Spontaneous
  Country: DE (occurrence: DE)
  Receive Date: 20221103
  Receipt Date: 20221103
  Transmission Date: 20230112
  Serious: Yes (Death, Other)
  Sender: FDA-Public Use
  Company Number: DE-Atnahs Limited-ATNAHS20221010696

PATIENT
  Age: 79 Year
  Sex: Female
  Weight: 62 kg

DRUGS (66)
  1. VALIUM [Suspect]
     Active Substance: DIAZEPAM
     Indication: Pain
     Route: 048
  2. BACTRIM [Suspect]
     Active Substance: SULFAMETHOXAZOLE\TRIMETHOPRIM
     Indication: Infection
     Route: 048
     Dates: start: 19950122, end: 19950123
  3. MIDAZOLAM HYDROCHLORIDE [Suspect]
     Active Substance: MIDAZOLAM HYDROCHLORIDE
     Indication: Anaesthesia
     Route: 042
     Dates: start: 19950113, end: 19950113
  4. BROMAZEPAM [Suspect]
     Active Substance: BROMAZEPAM
     Indication: Sedation
     Route: 048
     Dates: start: 19950128, end: 19950128
  5. FLUNITRAZEPAM [Suspect]
     Active Substance: FLUNITRAZEPAM
     Indication: Anaesthesia
     Route: 042
     Dates: start: 19950113, end: 19950113
  6. LASIX [Suspect]
     Active Substance: FUROSEMIDE
     Indication: Oedema
     Route: 048
     Dates: start: 19950112
  7. LASIX [Suspect]
     Active Substance: FUROSEMIDE
     Indication: Polyuria
     Route: 042
     Dates: end: 19950115
  8. LASIX [Suspect]
     Active Substance: FUROSEMIDE
     Route: 042
     Dates: start: 19950113, end: 19950115
  9. ACETYLCYSTEINE [Suspect]
     Active Substance: ACETYLCYSTEINE
     Indication: Cough
     Route: 048
     Dates: start: 19950119
  10. CYANOCOBALAMIN\FERROUS GLYCINE SULFATE\FOLIC ACID [Suspect]
     Active Substance: CYANOCOBALAMIN\FERROUS GLYCINE SULFATE\FOLIC ACID
     Indication: Iron deficiency
     Route: 048
     Dates: start: 19950119
  11. POTASSIUM CARBONATE\POTASSIUM CITRATE [Suspect]
     Active Substance: POTASSIUM CARBONATE\POTASSIUM CITRATE
     Indication: Blood potassium decreased
     Route: 048
     Dates: start: 19950119, end: 19950120
  12. POTASSIUM CARBONATE\POTASSIUM CITRATE [Suspect]
     Active Substance: POTASSIUM CARBONATE\POTASSIUM CITRATE
     Route: 048
     Dates: start: 19950123, end: 19950127
  13. METOCLOPRAMIDE HYDROCHLORIDE [Suspect]
     Active Substance: METOCLOPRAMIDE HYDROCHLORIDE
     Indication: Nausea
     Route: 048
     Dates: start: 19950129
  14. BUTYLSCOPOLAMINE BROMIDE [Suspect]
     Active Substance: BUTYLSCOPOLAMINE BROMIDE
     Indication: Pain
     Route: 054
     Dates: start: 19950130, end: 19950130
  15. ALLOPURINOL [Suspect]
     Active Substance: ALLOPURINOL
     Indication: Hyperuricaemia
     Route: 048
     Dates: start: 19950126
  16. OXAZEPAM [Suspect]
     Active Substance: OXAZEPAM
     Indication: Sleep disorder
     Route: 048
     Dates: start: 19950121, end: 19950121
  17. ZINACEF [Suspect]
     Active Substance: CEFUROXIME SODIUM
     Indication: Infection
     Route: 042
     Dates: start: 19950124, end: 19950131
  18. TRAMADOL [Suspect]
     Active Substance: TRAMADOL
     Indication: Pain
     Route: 048
     Dates: start: 19950126, end: 19950126
  19. DOPAMINE HYDROCHLORIDE [Suspect]
     Active Substance: DOPAMINE HYDROCHLORIDE
     Indication: Cardiovascular disorder
     Dosage: 3ML/HR
     Route: 042
     Dates: start: 19950113, end: 19950115
  20. ASPIRIN [Suspect]
     Active Substance: ASPIRIN
     Indication: Product used for unknown indication
     Route: 048
     Dates: start: 19950116, end: 19950124
  21. DIGITOXIN [Suspect]
     Active Substance: DIGITOXIN
     Indication: Cardiac failure
     Route: 048
     Dates: start: 19950124
  22. DIGITOXIN [Suspect]
     Active Substance: DIGITOXIN
     Indication: Left ventricular failure
     Route: 042
     Dates: start: 19950113, end: 19950114
  23. BISOLVON [Suspect]
     Active Substance: BROMHEXINE HYDROCHLORIDE
     Indication: Cough
     Route: 048
     Dates: start: 19950116, end: 19950116
  24. HEPARIN [Concomitant]
     Active Substance: HEPARIN SODIUM
     Indication: Product used for unknown indication
     Dates: start: 19950109
  25. LEVOTHYROXINE SODIUM [Concomitant]
     Active Substance: LEVOTHYROXINE SODIUM
     Indication: Product used for unknown indication
     Route: 048
  26. SUCRALFATE [Concomitant]
     Active Substance: SUCRALFATE
     Indication: Product used for unknown indication
     Dates: start: 19950119
  27. CAPTOPRIL [Concomitant]
     Active Substance: CAPTOPRIL
     Indication: Product used for unknown indication
     Dates: start: 19950112
  28. METOPROLOL TARTRATE [Concomitant]
     Active Substance: METOPROLOL TARTRATE
     Indication: Hypertonia
     Route: 048
     Dates: start: 19950112
  29. ISOSORBIDE DINITRATE [Concomitant]
     Active Substance: ISOSORBIDE DINITRATE
     Indication: Coronary artery disease
     Route: 042
     Dates: start: 19950112
  30. ADALAT [Concomitant]
     Active Substance: NIFEDIPINE
     Indication: Hypertonia
     Route: 048
     Dates: start: 19950106, end: 19950112
  31. NOVODIGAL (.BETA.-ACETYLDIGOXIN) [Concomitant]
     Active Substance: .BETA.-ACETYLDIGOXIN
     Indication: Cardiac failure
     Route: 048
     Dates: start: 19950107
  32. SUPRARENIN [Concomitant]
     Active Substance: EPINEPHRINE
     Indication: Cardiovascular disorder
     Dates: start: 19950113, end: 19950113
  33. PERFAN [Concomitant]
     Active Substance: ENOXIMONE
     Indication: Cardiac failure
     Dates: start: 19950113, end: 19950113
  34. POTASSIUM CHLORIDE [Concomitant]
     Active Substance: POTASSIUM CHLORIDE
     Indication: Blood potassium decreased
     Route: 042
     Dates: start: 19950113, end: 19950113
  35. DILTIAZEM [Concomitant]
     Active Substance: DILTIAZEM
     Indication: Coronary artery disease
     Route: 042
     Dates: start: 19950113, end: 19950113
  36. ALBUMIN HUMAN [Concomitant]
     Active Substance: ALBUMIN HUMAN
     Indication: Hypovolaemia
     Route: 042
     Dates: start: 19950113, end: 19950113
  37. PREDNISOLONE SODIUM SUCCINATE [Concomitant]
     Active Substance: PREDNISOLONE SODIUM SUCCINATE
     Indication: Hypersensitivity
     Route: 042
     Dates: start: 19950202
  38. CLEMASTINE [Concomitant]
     Active Substance: CLEMASTINE
     Indication: Hypersensitivity
     Route: 042
     Dates: start: 19950202
  39. CLEMASTINE [Concomitant]
     Active Substance: CLEMASTINE
     Route: 042
     Dates: start: 19950203, end: 19950203
  40. CIPROFLOXACIN HYDROCHLORIDE [Concomitant]
     Active Substance: CIPROFLOXACIN HYDROCHLORIDE
     Indication: Infection
     Route: 048
     Dates: start: 19950203, end: 19950203
  41. EUCALYPTUS OIL [Concomitant]
     Active Substance: EUCALYPTUS OIL
     Indication: Product used for unknown indication
     Route: 062
  42. INSULIN NOS [Concomitant]
     Active Substance: INSULIN NOS
     Indication: Blood glucose increased
     Route: 042
     Dates: start: 19950113, end: 19950115
  43. BISACODYL [Concomitant]
     Active Substance: BISACODYL
     Indication: Constipation
     Route: 048
     Dates: start: 19950116, end: 19950202
  44. MANNITOL [Concomitant]
     Active Substance: MANNITOL
     Indication: Polyuria
     Route: 042
     Dates: start: 19950112, end: 19950115
  45. ETHACRYNIC ACID [Concomitant]
     Active Substance: ETHACRYNIC ACID
     Indication: Polyuria
     Route: 042
     Dates: start: 19950113, end: 19950115
  46. ETHACRYNIC ACID [Concomitant]
     Active Substance: ETHACRYNIC ACID
     Indication: Oedema
     Route: 048
     Dates: start: 19950116, end: 19950116
  47. PIRITRAMIDE [Concomitant]
     Active Substance: PIRITRAMIDE
     Indication: Pain
     Route: 042
     Dates: start: 19950113, end: 19950115
  48. CALCIUM [Concomitant]
     Active Substance: CALCIUM
     Indication: Blood calcium decreased
     Route: 042
     Dates: start: 19950113, end: 19950113
  49. ANTITHROMBINE III [Concomitant]
     Indication: Coagulopathy
     Route: 042
     Dates: start: 19950113, end: 19950113
  50. NITROLINGUAL [Concomitant]
     Active Substance: NITROGLYCERIN
     Indication: Cardiac failure
     Route: 042
     Dates: start: 19950113, end: 19950113
  51. GELAFUNDIN [GELATINE POLYSUCCINATE] [Concomitant]
     Indication: Hypovolaemia
     Route: 042
     Dates: start: 19950113, end: 19950113
  52. NOREPINEPHRINE HYDROCHLORIDE, (+/-)- [Concomitant]
     Active Substance: NOREPINEPHRINE HYDROCHLORIDE, (+/-)-
     Indication: Cardiovascular disorder
     Route: 042
     Dates: start: 19950113, end: 19950113
  53. PANCURONIUM BROMIDE [Concomitant]
     Active Substance: PANCURONIUM BROMIDE
     Indication: Anaesthesia
     Route: 042
     Dates: start: 19950113, end: 19950113
  54. MAGNESIUM ASPARTATE\POTASSIUM ASPARTATE [Concomitant]
     Active Substance: MAGNESIUM ASPARTATE\POTASSIUM ASPARTATE
     Indication: Electrolyte imbalance
     Route: 042
     Dates: start: 19950113, end: 19950113
  55. TRASYLOL [Concomitant]
     Active Substance: APROTININ
     Indication: Coagulopathy
     Route: 042
     Dates: start: 19950113, end: 19950113
  56. SUFENTA [Concomitant]
     Active Substance: SUFENTANIL CITRATE
     Indication: Anaesthesia
     Route: 042
     Dates: start: 19950113, end: 19950113
  57. DOBUTREX [Concomitant]
     Active Substance: DOBUTAMINE HYDROCHLORIDE
     Indication: Cardiovascular disorder
     Route: 042
     Dates: start: 19950114, end: 19950115
  58. LACTULOSE [Concomitant]
     Active Substance: LACTULOSE
     Indication: Constipation
     Route: 048
     Dates: start: 19950109, end: 19950117
  59. DEXTROSE [Concomitant]
     Active Substance: DEXTROSE
     Indication: Product used for unknown indication
     Route: 042
     Dates: start: 19950113, end: 19950113
  60. DEXTROSE [Concomitant]
     Active Substance: DEXTROSE
     Route: 042
     Dates: start: 19950114, end: 19950114
  61. FENTANYL [Concomitant]
     Active Substance: FENTANYL
     Indication: Anaesthesia
     Route: 042
     Dates: start: 19950113, end: 19950113
  62. ENFLURAN [Concomitant]
     Indication: Anaesthesia
     Dates: start: 19950113, end: 19950113
  63. SODIUM CHLORIDE [Concomitant]
     Active Substance: SODIUM CHLORIDE
     Indication: Hyponatraemia
     Route: 042
     Dates: start: 19950115, end: 19950115
  64. BUPRENORPHINE HYDROCHLORIDE [Concomitant]
     Active Substance: BUPRENORPHINE HYDROCHLORIDE
     Indication: Pain
     Route: 048
  65. POTASSIUM CHLORIDE [Concomitant]
     Active Substance: POTASSIUM CHLORIDE
     Indication: Hypokalaemia
     Route: 048
     Dates: start: 19950113, end: 19950201
  66. RINGER^S SOLUTION [CALCIUM CHLORIDE;POTASSIUM CHLORIDE;SODIUM CHLOR... [Concomitant]
     Indication: Product used for unknown indication
     Route: 042
     Dates: start: 19950113, end: 19950201

REACTIONS (4)
  - Toxic epidermal necrolysis [Fatal]
  - Constipation [Unknown]
  - Lymphocytosis [Unknown]
  - Pyrexia [Unknown]

NARRATIVE: CASE EVENT DATE: 19950130
